FAERS Safety Report 9871075 (Version 5)
Quarter: 2014Q1

REPORT INFORMATION
  Report Type: Spontaneous
  Country: US (occurrence: US)
  Receive Date: 20140205
  Receipt Date: 20140331
  Transmission Date: 20141002
  Serious: Yes (Hospitalization, Other)
  Sender: FDA-Public Use
  Company Number: US-009507513-1205USA04812

PATIENT
  Sex: Female

DRUGS (4)
  1. FOSAMAX [Suspect]
     Indication: OSTEOPOROSIS
     Dosage: 10 MG, QD
     Route: 048
     Dates: start: 1998, end: 2005
  2. FOSAMAX [Suspect]
     Dosage: 70 MG, QW
     Route: 048
     Dates: end: 2005
  3. FOSAMAX [Suspect]
     Route: 048
  4. FOSAMAX PLUS D [Suspect]
     Dosage: 70 MG/2800 IU, UNK
     Route: 048
     Dates: end: 2006

REACTIONS (36)
  - Femur fracture [Recovering/Resolving]
  - Open reduction of fracture [Unknown]
  - Adverse event [Unknown]
  - Rheumatoid arthritis [Unknown]
  - Hyperlipidaemia [Unknown]
  - Tonsillectomy [Unknown]
  - Arteriosclerosis [Unknown]
  - Arthritis [Unknown]
  - Rotator cuff syndrome [Unknown]
  - Deep vein thrombosis [Unknown]
  - Hyperthyroidism [Unknown]
  - Thyroiditis [Unknown]
  - Ileus [Recovered/Resolved]
  - Osteoarthritis [Unknown]
  - Syncope [Unknown]
  - Breast cyst [Unknown]
  - Cellulitis [Unknown]
  - Bladder prolapse [Unknown]
  - Weight decreased [Unknown]
  - Depression [Unknown]
  - Diverticulitis [Unknown]
  - Sinus bradycardia [Unknown]
  - Tendonitis [Recovering/Resolving]
  - Spinal compression fracture [Unknown]
  - Venous insufficiency [Unknown]
  - Osteoarthritis [Unknown]
  - Lumbar spine flattening [Unknown]
  - Uterine prolapse [Unknown]
  - Bladder prolapse [Unknown]
  - Scoliosis [Unknown]
  - Intervertebral disc degeneration [Unknown]
  - Oedema peripheral [Unknown]
  - Arthralgia [Unknown]
  - Myalgia [Unknown]
  - Back pain [Not Recovered/Not Resolved]
  - Neck pain [Unknown]
